FAERS Safety Report 5419886-7 (Version None)
Quarter: 2007Q3

REPORT INFORMATION
  Report Type: 
  Country: None (occurrence: None)
  Receive Date: 20070820
  Receipt Date: 20070808
  Transmission Date: 20080115
  Serious: Yes (Hospitalization, Other)
  Sender: FDA-Public Use
  Company Number: US-PFIZER INC-2007043750

PATIENT
  Sex: Female

DRUGS (1)
  1. CELEBREX [Suspect]
     Indication: ARTHRALGIA

REACTIONS (4)
  - BLOOD DISORDER [None]
  - CARDIOVASCULAR DISORDER [None]
  - MEMORY IMPAIRMENT [None]
  - MOVEMENT DISORDER [None]
